FAERS Safety Report 5684810-9 (Version None)
Quarter: 2008Q1

REPORT INFORMATION
  Report Type: 
  Country: None (occurrence: None)
  Receive Date: 20080328
  Receipt Date: 20071025
  Transmission Date: 20080703
  Serious: No
  Sender: FDA-Public Use
  Company Number: US-BRISTOL-MYERS SQUIBB COMPANY-13932447

PATIENT
  Age: 69 Year
  Sex: Female

DRUGS (7)
  1. ERBITUX [Suspect]
     Indication: COLON CANCER STAGE IV
     Route: 042
     Dates: start: 20070716, end: 20071008
  2. FLUOROURACIL [Suspect]
     Indication: COLON CANCER STAGE IV
     Route: 042
     Dates: start: 20051226
  3. AVASTIN [Suspect]
     Indication: COLON CANCER STAGE IV
     Route: 042
     Dates: start: 20051226
  4. LEUCOVORIN [Suspect]
  5. METFORMIN [Concomitant]
  6. GLYBURIDE [Concomitant]
  7. DIOVAN [Concomitant]

REACTIONS (3)
  - ERYTHEMA [None]
  - EYE SWELLING [None]
  - PIGMENTATION DISORDER [None]
